FAERS Safety Report 6268945-8 (Version None)
Quarter: 2009Q3

REPORT INFORMATION
  Report Type: 
  Country: None (occurrence: None)
  Receive Date: 20090714
  Receipt Date: 20090714
  Transmission Date: 20100115
  Serious: Yes (Other)
  Sender: FDA-Public Use
  Company Number: None

PATIENT
  Age: 51 Year
  Sex: Female
  Weight: 62.5964 kg

DRUGS (2)
  1. FEMARA [Suspect]
     Indication: BREAST CANCER
     Dosage: ONCE DAILY
     Dates: start: 20090513, end: 20090712
  2. FEMARA [Suspect]
     Indication: OESTROGEN REPLACEMENT THERAPY
     Dosage: ONCE DAILY
     Dates: start: 20090513, end: 20090712

REACTIONS (3)
  - ARTHRALGIA [None]
  - JOINT STIFFNESS [None]
  - PAIN IN EXTREMITY [None]
